FAERS Safety Report 5928761-0 (Version None)
Quarter: 2008Q4

REPORT INFORMATION
  Report Type: 
  Country: None (occurrence: None)
  Receive Date: 20081024
  Receipt Date: 20081021
  Transmission Date: 20090506
  Serious: Yes (Death, Other)
  Sender: FDA-Public Use
  Company Number: DK-RANBAXY-2008RR-18148

PATIENT
  Sex: Male

DRUGS (6)
  1. PRAVASTATIN [Suspect]
     Indication: HYPERCHOLESTEROLAEMIA
     Dosage: UNK
     Dates: start: 20070503, end: 20080803
  2. ESOPRAL [Concomitant]
     Indication: HYPERTENSION
     Dosage: UNK
     Dates: start: 20070911
  3. ESOPRAL [Concomitant]
     Indication: DYSPEPSIA
  4. CENTYL MED KALIUMKLORID [Concomitant]
     Route: 048
  5. SOTALOL [Concomitant]
     Indication: HYPERTENSION
     Dosage: 40 MG, QD
  6. MAGNYL ^DAK^ [Concomitant]
     Indication: THROMBOSIS PROPHYLAXIS
     Dosage: 100 MG, QD
     Route: 048

REACTIONS (2)
  - MUSCULAR WEAKNESS [None]
  - RHABDOMYOLYSIS [None]
